FAERS Safety Report 6278075-7 (Version None)
Quarter: 2009Q3

REPORT INFORMATION
  Report Type: 
  Country: None (occurrence: None)
  Receive Date: 20090722
  Receipt Date: 20090713
  Transmission Date: 20100115
  Serious: Yes (Death, Hospitalization)
  Sender: FDA-Public Use
  Company Number: PHHO2009US08515

PATIENT
  Sex: Female

DRUGS (10)
  1. RAD 666 RAD+TAB [Suspect]
     Indication: NON-SMALL CELL LUNG CANCER
  2. FOLIC ACID [Concomitant]
  3. PROCHLORPERAZINE [Concomitant]
  4. DECADRON [Concomitant]
  5. PRAVACHOL [Concomitant]
  6. MONOPRIL [Concomitant]
  7. AMBIEN [Concomitant]
  8. CODEINE SYRUP [Concomitant]
  9. LISINOPRIL [Concomitant]
  10. PRAVASTATIN [Concomitant]

REACTIONS (13)
  - AORTIC ANEURYSM [None]
  - ARTERIOSCLEROSIS [None]
  - BLOOD PRESSURE SYSTOLIC INCREASED [None]
  - COMPUTERISED TOMOGRAM THORAX ABNORMAL [None]
  - COUGH [None]
  - DEATH [None]
  - HYPOKALAEMIA [None]
  - LUNG CONSOLIDATION [None]
  - OSTEOSCLEROSIS [None]
  - PELVIC FLUID COLLECTION [None]
  - PULMONARY EMBOLISM [None]
  - THYROID NEOPLASM [None]
  - VENTRICULAR EXTRASYSTOLES [None]
